FAERS Safety Report 10043277 (Version 1)
Quarter: 2014Q1

REPORT INFORMATION
  Report Type: Spontaneous
  Country: US (occurrence: US)
  Receive Date: 20140328
  Receipt Date: 20140328
  Transmission Date: 20141002
  Serious: No
  Sender: FDA-Public Use
  Company Number: US-009507513-1403USA012379

PATIENT
  Age: 64 Year
  Sex: Male

DRUGS (3)
  1. PEGINTRON [Suspect]
     Indication: HEPATITIS C
     Dosage: 120 MG, QW
     Route: 058
     Dates: start: 20140205
  2. SOVALDI [Concomitant]
  3. RIBAPAK [Concomitant]

REACTIONS (2)
  - Influenza like illness [Unknown]
  - Incorrect dose administered [Unknown]
